FAERS Safety Report 4346521-1 (Version None)
Quarter: 2004Q2

REPORT INFORMATION
  Report Type: 
  Country: None (occurrence: None)
  Receive Date: 20040426
  Receipt Date: 20031106
  Transmission Date: 20050107
  Serious: No
  Sender: FDA-Public Use
  Company Number: US-BRISTOL-MYERS SQUIBB COMPANY-12432076

PATIENT
  Sex: Female

DRUGS (1)
  1. PARAPLATIN [Suspect]
     Dosage: DOSING SOLUTION = 2 MG/ML
     Route: 042

REACTIONS (2)
  - BURNING SENSATION [None]
  - EXTRAVASATION [None]
